FAERS Safety Report 7564654-3 (Version None)
Quarter: 2011Q2

REPORT INFORMATION
  Report Type: 
  Country: None (occurrence: None)
  Receive Date: 20110622
  Receipt Date: 20100805
  Transmission Date: 20111010
  Serious: Yes (Other)
  Sender: FDA-Public Use
  Company Number: US-MYLANLABS-2010S1014204

PATIENT
  Age: 44 Year
  Sex: Male

DRUGS (10)
  1. SEROQUEL [Concomitant]
  2. ABILIFY [Concomitant]
  3. LITHIUM [Concomitant]
  4. CLOZAPINE [Suspect]
     Indication: SCHIZOPHRENIA
     Route: 048
     Dates: start: 20100609, end: 20100802
  5. RESTORIL [Concomitant]
  6. CLONAZEPAM [Concomitant]
  7. SYNTHROID [Concomitant]
  8. TEGRETOL [Concomitant]
  9. ZYPREXA [Concomitant]
  10. SEROQUEL [Concomitant]

REACTIONS (2)
  - LEUKOPENIA [None]
  - GRANULOCYTOPENIA [None]
